FAERS Safety Report 21975717 (Version 2)
Quarter: 2023Q1

REPORT INFORMATION
  Report Type: Report from Study
  Country: CA (occurrence: CA)
  Receive Date: 20230210
  Receipt Date: 20230228
  Transmission Date: 20230417
  Serious: Yes (Hospitalization, Other)
  Sender: FDA-Public Use
  Company Number: CA-JNJFOC-20230205206

PATIENT
  Age: 38 Year
  Sex: Male

DRUGS (1)
  1. TREMFYA [Suspect]
     Active Substance: GUSELKUMAB
     Indication: Psoriatic arthropathy
     Route: 058

REACTIONS (9)
  - Pneumonia [Unknown]
  - Influenza [Unknown]
  - Seizure [Unknown]
  - Metabolic surgery [Unknown]
  - Prostatitis [Unknown]
  - Synovitis [Unknown]
  - Pain [Unknown]
  - Malaise [Unknown]
  - COVID-19 [Unknown]

NARRATIVE: CASE EVENT DATE: 20221207
